FAERS Safety Report 17949114 (Version 1)
Quarter: 2020Q2

REPORT INFORMATION
  Report Type: Spontaneous
  Country: US (occurrence: US)
  Receive Date: 20200625
  Receipt Date: 20200625
  Transmission Date: 20200714
  Serious: No
  Sender: FDA-Public Use
  Company Number: US-ROCHE-2373854

PATIENT
  Age: 55 Year
  Sex: Female

DRUGS (3)
  1. KLONOPIN [Suspect]
     Active Substance: CLONAZEPAM
     Indication: PRODUCT USED FOR UNKNOWN INDICATION
     Route: 065
  2. LAMICTAL [Suspect]
     Active Substance: LAMOTRIGINE
     Indication: PRODUCT USED FOR UNKNOWN INDICATION
     Route: 065
  3. LATUDA [Suspect]
     Active Substance: LURASIDONE HYDROCHLORIDE
     Indication: PRODUCT USED FOR UNKNOWN INDICATION
     Route: 048

REACTIONS (7)
  - Crying [Unknown]
  - Anxiety [Unknown]
  - Product dose omission [Unknown]
  - Formication [Unknown]
  - Tachyphrenia [Unknown]
  - Mental disorder [Unknown]
  - Insomnia [Unknown]
